FAERS Safety Report 7484454-2 (Version None)
Quarter: 2011Q2

REPORT INFORMATION
  Report Type: 
  Country: None (occurrence: None)
  Receive Date: 20110516
  Receipt Date: 20110516
  Transmission Date: 20111010
  Serious: Yes (Other)
  Sender: FDA-Public Use
  Company Number: None

PATIENT
  Age: 37 Year
  Sex: Female
  Weight: 153.3158 kg

DRUGS (3)
  1. CYMBALTA [Suspect]
     Indication: FIBROMYALGIA
     Dosage: 30MG DAILY PO
     Route: 048
     Dates: start: 20080106, end: 20110512
  2. CYMBALTA [Suspect]
     Indication: BACK PAIN
     Dosage: 30MG DAILY PO
     Route: 048
     Dates: start: 20080106, end: 20110512
  3. CYMBALTA [Suspect]
     Indication: SPONDYLOLYSIS
     Dosage: 30MG DAILY PO
     Route: 048
     Dates: start: 20080106, end: 20110512

REACTIONS (14)
  - PALPITATIONS [None]
  - DEHYDRATION [None]
  - FATIGUE [None]
  - LETHARGY [None]
  - HEAD TITUBATION [None]
  - IRRITABILITY [None]
  - PAIN [None]
  - DIZZINESS [None]
  - WITHDRAWAL SYNDROME [None]
  - PARAESTHESIA [None]
  - EYE MOVEMENT DISORDER [None]
  - BLOOD GLUCOSE DECREASED [None]
  - FEELING ABNORMAL [None]
  - HEARING IMPAIRED [None]
